FAERS Safety Report 6373378-X (Version None)
Quarter: 2009Q3

REPORT INFORMATION
  Report Type: 
  Country: None (occurrence: None)
  Receive Date: 20090924
  Receipt Date: 20090305
  Transmission Date: 20100115
  Serious: Yes (Other)
  Sender: FDA-Public Use
  Company Number: US-ASTRAZENECA-2009UW06050

PATIENT
  Age: 37 Year
  Sex: Male

DRUGS (4)
  1. SEROQUEL [Suspect]
     Indication: BIPOLAR DISORDER
     Route: 048
  2. SEROQUEL [Suspect]
     Indication: DEPRESSION
     Route: 048
  3. PROZAC [Concomitant]
     Route: 048
  4. XANAX [Concomitant]
     Route: 048

REACTIONS (1)
  - HYPERGLYCAEMIA [None]
